FAERS Safety Report 5800685-9 (Version None)
Quarter: 2008Q3

REPORT INFORMATION
  Report Type: 
  Country: None (occurrence: None)
  Receive Date: 20080703
  Receipt Date: 20080625
  Transmission Date: 20090109
  Serious: Yes (Hospitalization, Other)
  Sender: FDA-Public Use
  Company Number: BR-ABBOTT-08P-020-0455622-00

PATIENT
  Sex: Male
  Weight: 66 kg

DRUGS (6)
  1. HUMIRA [Suspect]
     Indication: RHEUMATOID ARTHRITIS
     Route: 058
     Dates: start: 20061201
  2. HUMIRA [Suspect]
     Dates: start: 20080606
  3. DICLOFENAC DIETHYLAMINE [Concomitant]
     Indication: RHEUMATOID ARTHRITIS
     Dosage: MAGISTRAL FORMULA
     Route: 048
  4. PREDNISONE 50MG TAB [Concomitant]
     Indication: RHEUMATOID ARTHRITIS
     Dosage: MAGISTRAL FORMULA
     Route: 048
  5. FAMOTIDINE [Concomitant]
     Indication: RHEUMATOID ARTHRITIS
     Dosage: MAGISTRAL FORMULA
     Route: 048
  6. LOSARTAN [Concomitant]
     Indication: HYPERTENSION
     Route: 048
     Dates: start: 20080401

REACTIONS (4)
  - COAGULOPATHY [None]
  - FATIGUE [None]
  - MALAISE [None]
  - MITRAL VALVE DISEASE [None]
